FAERS Safety Report 10096813 (Version 2)
Quarter: 2014Q2

REPORT INFORMATION
  Report Type: Spontaneous
  Country: BR (occurrence: BR)
  Receive Date: 20140422
  Receipt Date: 20140508
  Transmission Date: 20141212
  Serious: Yes (Hospitalization)
  Sender: FDA-Public Use
  Company Number: BR-PFIZER INC-2014109210

PATIENT
  Age: 59 Year
  Sex: Female
  Weight: 75 kg

DRUGS (2)
  1. LIPITOR [Suspect]
     Dosage: 10 MG, UNK
     Route: 048
     Dates: start: 2011
  2. ROSUVASTATIN CALCIUM [Suspect]
     Indication: BLOOD CHOLESTEROL
     Dosage: UNK
     Dates: start: 201310

REACTIONS (8)
  - Cerebrovascular accident [Recovered/Resolved with Sequelae]
  - Hypoaesthesia oral [Unknown]
  - Blood pressure fluctuation [Unknown]
  - Anxiety [Unknown]
  - Insomnia [Unknown]
  - Muscle atrophy [Unknown]
  - Temperature difference of extremities [Unknown]
  - Formication [Unknown]
